FAERS Safety Report 8485995-1 (Version None)
Quarter: 2012Q3

REPORT INFORMATION
  Report Type: 
  Country: None (occurrence: None)
  Receive Date: 20120703
  Receipt Date: 20120621
  Transmission Date: 20120928
  Serious: Yes (Hospitalization)
  Sender: FDA-Public Use
  Company Number: TR-ASTRAZENECA-2012SE41811

PATIENT
  Age: 3 Year
  Sex: Female

DRUGS (4)
  1. ULTIVA [Concomitant]
  2. ROCURONIUM BROMIDE [Concomitant]
  3. AVIL [Concomitant]
  4. PROPOFOL [Suspect]
     Indication: INDUCTION OF ANAESTHESIA
     Route: 042
     Dates: start: 20120607, end: 20120607

REACTIONS (2)
  - PYREXIA [None]
  - HAEMATEMESIS [None]
